FAERS Safety Report 4657869-5 (Version None)
Quarter: 2005Q2

REPORT INFORMATION
  Report Type: 
  Country: None (occurrence: None)
  Receive Date: 20050510
  Receipt Date: 20050428
  Transmission Date: 20051028
  Serious: Yes (Other)
  Sender: FDA-Public Use
  Company Number: PHEH2005US04966

PATIENT
  Age: 18 Year
  Sex: Female
  Weight: 56 kg

DRUGS (3)
  1. PHENYTOIN [Concomitant]
     Dosage: UNK, UNK
     Dates: start: 19900101
  2. LAMICTAL [Concomitant]
  3. TRILEPTAL [Suspect]
     Indication: PARTIAL SEIZURES
     Dosage: 600 MG, BID
     Route: 048
     Dates: start: 20040506

REACTIONS (2)
  - CEREBELLAR ATROPHY [None]
  - THERAPEUTIC RESPONSE DECREASED [None]
